FAERS Safety Report 9447901 (Version 1)
Quarter: 2013Q3

REPORT INFORMATION
  Report Type: Spontaneous
  Country: US (occurrence: None)
  Receive Date: 20130807
  Receipt Date: 20130807
  Transmission Date: 20140515
  Serious: Yes (Other)
  Sender: FDA-Public Use
  Company Number: None

PATIENT
  Sex: Female

DRUGS (1)
  1. CITALOPRAM [Suspect]
     Indication: ANXIETY
     Dosage: 1 PILL QD ORAL
     Route: 048
     Dates: start: 20130619, end: 20130806

REACTIONS (3)
  - Hallucination [None]
  - Nightmare [None]
  - Feeling abnormal [None]
